FAERS Safety Report 18736913 (Version 1)
Quarter: 2021Q1

REPORT INFORMATION
  Report Type: Spontaneous
  Country: US (occurrence: US)
  Receive Date: 20210113
  Receipt Date: 20210113
  Transmission Date: 20210419
  Serious: Yes (Hospitalization)
  Sender: FDA-Public Use
  Company Number: US-MYLANLABS-2021M1002110

PATIENT
  Age: 55 Year
  Sex: Male

DRUGS (3)
  1. ADALIMUMAB [Suspect]
     Active Substance: ADALIMUMAB
     Indication: PSORIATIC ARTHROPATHY
     Dosage: 40 MILLIGRAM EVERY OTHER WEEK
     Route: 065
  2. ADALIMUMAB [Suspect]
     Active Substance: ADALIMUMAB
     Dosage: 20 MILLIGRAM EVERY OTHER WEEK
     Route: 065
  3. LISINOPRIL. [Concomitant]
     Active Substance: LISINOPRIL
     Indication: HYPERTENSION
     Route: 065

REACTIONS (8)
  - Central vision loss [Recovering/Resolving]
  - Unmasking of previously unidentified disease [Recovering/Resolving]
  - Macular detachment [Recovering/Resolving]
  - Acute kidney injury [Recovering/Resolving]
  - Choroidal detachment [Recovering/Resolving]
  - Vision blurred [Recovering/Resolving]
  - Tubulointerstitial nephritis [Recovering/Resolving]
  - Chorioretinitis [Recovering/Resolving]
